FAERS Safety Report 5663673-1 (Version None)
Quarter: 2008Q1

REPORT INFORMATION
  Report Type: 
  Country: None (occurrence: None)
  Receive Date: 20080307
  Receipt Date: 20080225
  Transmission Date: 20080703
  Serious: Yes (Death)
  Sender: FDA-Public Use
  Company Number: GXKR2008GB02016

PATIENT
  Age: 45 Year
  Sex: Female

DRUGS (4)
  1. AZATHIOPRINE [Suspect]
     Indication: SYSTEMIC LUPUS ERYTHEMATOSUS
  2. PREDNISOLONE [Suspect]
  3. RITUXIMAB(RITUXIMAB) [Suspect]
     Indication: SYSTEMIC LUPUS ERYTHEMATOSUS
     Dosage: 375 MG/M2, 4 WEEKS, 2 COURSES; 375 MG/M2, ONCE/SINGLE
  4. CYCLOPHOSPHAMIDE [Suspect]
     Dosage: ORAL
     Route: 048

REACTIONS (13)
  - BONE MARROW TOXICITY [None]
  - CEREBELLAR SYNDROME [None]
  - CYSTITIS HAEMORRHAGIC [None]
  - DISEASE RECURRENCE [None]
  - DYSPHAGIA [None]
  - HERPES ZOSTER [None]
  - JC VIRUS INFECTION [None]
  - NEUTROPHIL COUNT DECREASED [None]
  - NO THERAPEUTIC RESPONSE [None]
  - PNEUMONIA [None]
  - PROGRESSIVE MULTIFOCAL LEUKOENCEPHALOPATHY [None]
  - RESPIRATORY FAILURE [None]
  - WEIGHT DECREASED [None]
